FAERS Safety Report 23193023 (Version 2)
Quarter: 2023Q4

REPORT INFORMATION
  Report Type: Report from Study
  Country: US (occurrence: US)
  Receive Date: 20231116
  Receipt Date: 20231123
  Transmission Date: 20240109
  Serious: Yes (Hospitalization)
  Sender: FDA-Public Use
  Company Number: US-ABBVIE-5496183

PATIENT
  Sex: Male
  Weight: 91.171 kg

DRUGS (3)
  1. LUPRON [Suspect]
     Active Substance: LEUPROLIDE ACETATE
     Indication: Product used for unknown indication
     Route: 065
     Dates: start: 202306
  2. LUPRON [Suspect]
     Active Substance: LEUPROLIDE ACETATE
     Dosage: LAST ADMIN DATE: 2023
     Route: 065
     Dates: start: 20230514
  3. ELIQUIS [Concomitant]
     Active Substance: APIXABAN
     Indication: Anticoagulant therapy

REACTIONS (4)
  - Atypical pneumonia [Recovering/Resolving]
  - Respiratory tract congestion [Unknown]
  - COVID-19 [Recovering/Resolving]
  - Sinus congestion [Unknown]

NARRATIVE: CASE EVENT DATE: 20230101
